FAERS Safety Report 5163201-3 (Version None)
Quarter: 2006Q4

REPORT INFORMATION
  Report Type: 
  Country: None (occurrence: None)
  Receive Date: 20061204
  Receipt Date: 20060302
  Transmission Date: 20070319
  Serious: Yes (Hospitalization)
  Sender: FDA-Public Use
  Company Number: US-ELI_LILLY_AND_COMPANY-US200603003243

PATIENT
  Age: 43 Year
  Sex: Female
  Weight: 119.73 kg

DRUGS (11)
  1. ABILIFY [Concomitant]
     Dosage: UNK, UNKNOWN
     Dates: start: 20030401
  2. RISPERIDONE [Concomitant]
     Dosage: UNK, UNKNOWN
     Dates: start: 19970201
  3. GEODON [Concomitant]
     Dosage: UNK, UNKNOWN
     Dates: start: 20030501
  4. HALDOL [Concomitant]
     Dosage: UNK, UNKNOWN
     Dates: start: 19820101
  5. STELAZINE [Concomitant]
     Dosage: UNK, UNKNOWN
     Dates: start: 19950101
  6. LITHIUM CARBONATE [Concomitant]
     Dosage: UNK, UNKNOWN
     Dates: start: 19810101, end: 20050101
  7. ZYPREXA [Suspect]
     Indication: SCHIZOPHRENIA
     Dosage: 2.5 MG, UNKNOWN
     Dates: start: 19990601
  8. ZYPREXA [Suspect]
     Dosage: 5 MG, UNKNOWN
  9. ZYPREXA [Suspect]
     Dosage: 10 MG, UNKNOWN
  10. ZYPREXA [Suspect]
     Dosage: 15 MG, UNKNOWN
  11. ZYPREXA [Suspect]
     Dosage: 20 MG, UNKNOWN
     Dates: end: 20030701

REACTIONS (6)
  - BLOOD CHOLESTEROL INCREASED [None]
  - BLOOD TRIGLYCERIDES INCREASED [None]
  - DIABETES MELLITUS NON-INSULIN-DEPENDENT [None]
  - HYPERTENSION [None]
  - METABOLIC DISORDER [None]
  - OCULAR HYPERTENSION [None]
